FAERS Safety Report 8105565-4 (Version None)
Quarter: 2012Q1

REPORT INFORMATION
  Report Type: 
  Country: None (occurrence: None)
  Receive Date: 20120201
  Receipt Date: 20120116
  Transmission Date: 20120608
  Serious: Yes (Other)
  Sender: FDA-Public Use
  Company Number: DE-ROCHE-1031683

PATIENT
  Age: 68 Year
  Sex: Female

DRUGS (6)
  1. RITUXIMAB [Suspect]
     Indication: AUTOIMMUNE THROMBOCYTOPENIA
     Route: 065
  2. PREDNISONE TAB [Suspect]
     Indication: AUTOIMMUNE THROMBOCYTOPENIA
     Route: 065
  3. HEPARIN SODIUM [Suspect]
     Indication: ANTICOAGULANT THERAPY
     Route: 065
  4. CYCLOPHOSPHAMIDE [Suspect]
     Indication: AUTOIMMUNE THROMBOCYTOPENIA
     Route: 065
  5. VINCRISTINE [Suspect]
     Indication: AUTOIMMUNE THROMBOCYTOPENIA
     Route: 065
  6. DAUNORUBICIN HCL [Suspect]
     Indication: AUTOIMMUNE THROMBOCYTOPENIA
     Route: 065

REACTIONS (6)
  - HEPARIN-INDUCED THROMBOCYTOPENIA [None]
  - INFECTIOUS PLEURAL EFFUSION [None]
  - HERPES ZOSTER [None]
  - OESOPHAGEAL CANDIDIASIS [None]
  - PNEUMONIA [None]
  - POSTERIOR REVERSIBLE ENCEPHALOPATHY SYNDROME [None]
